FAERS Safety Report 7263099-3 (Version None)
Quarter: 2011Q1

REPORT INFORMATION
  Report Type: 
  Country: None (occurrence: None)
  Receive Date: 20110120
  Receipt Date: 20101201
  Transmission Date: 20110831
  Serious: Yes (Hospitalization)
  Sender: FDA-Public Use
  Company Number: 10-102

PATIENT
  Age: 32 Year
  Sex: Female
  Weight: 61.2356 kg

DRUGS (1)
  1. BISCODLY 5 MG, TIME CAP LABS INC./PLD [Suspect]
     Indication: SELF-MEDICATION
     Dosage: 1-3, ONCE DAILY, ORALLY
     Route: 048
     Dates: start: 20100807

REACTIONS (3)
  - NAUSEA [None]
  - PYREXIA [None]
  - ABDOMINAL PAIN [None]
